FAERS Safety Report 14618843 (Version 2)
Quarter: 2018Q1

REPORT INFORMATION
  Report Type: Spontaneous
  Country: US (occurrence: US)
  Receive Date: 20180309
  Receipt Date: 20180315
  Transmission Date: 20180509
  Serious: Yes (Other)
  Sender: FDA-Public Use
  Company Number: US-PFIZER INC-2018092435

PATIENT
  Age: 69 Year
  Sex: Male

DRUGS (6)
  1. PREDNISONE. [Concomitant]
     Active Substance: PREDNISONE
     Dosage: UNK
  2. QUINAPRIL. [Concomitant]
     Active Substance: QUINAPRIL
     Dosage: UNK
  3. WARFARIN [Concomitant]
     Active Substance: WARFARIN
     Dosage: UNK
  4. INSULIN GLARGINE [Concomitant]
     Active Substance: INSULIN GLARGINE
     Dosage: UNK
  5. LISPRO INSULIN [Concomitant]
     Active Substance: INSULIN LISPRO
     Dosage: UNK
  6. SULFAMETHOXAZOLE/TRIMETHOPRIM [Suspect]
     Active Substance: SULFAMETHOXAZOLE\TRIMETHOPRIM
     Dosage: UNK

REACTIONS (13)
  - Low density lipoprotein increased [None]
  - Pseudohyponatraemia [None]
  - Blood cholesterol increased [None]
  - Blood glucose increased [None]
  - Blood triglycerides increased [None]
  - High density lipoprotein decreased [None]
  - Hyponatraemia [Recovered/Resolved]
  - Cholestatic liver injury [None]
  - International normalised ratio increased [None]
  - Very low density lipoprotein increased [None]
  - Drug-induced liver injury [Unknown]
  - Vanishing bile duct syndrome [Unknown]
  - Liver transplant [None]
